FAERS Safety Report 20685848 (Version 4)
Quarter: 2022Q2

REPORT INFORMATION
  Report Type: Spontaneous
  Country: DE (occurrence: DE)
  Receive Date: 20220407
  Receipt Date: 20220518
  Transmission Date: 20220721
  Serious: Yes (Other)
  Sender: FDA-Public Use
  Company Number: DE-Hikma Pharmaceuticals-DE-H14001-22-00627

PATIENT
  Age: 77 Year
  Sex: Male

DRUGS (4)
  1. FLUOROURACIL [Suspect]
     Active Substance: FLUOROURACIL
     Indication: Hepatic neuroendocrine tumour
     Dosage: 400 MILLIGRAM/SQ. METER, CYCLE (DAYS 1-5, QD 43)
     Route: 065
     Dates: start: 201409, end: 201704
  2. FLUOROURACIL [Suspect]
     Active Substance: FLUOROURACIL
     Indication: Pancreatic neuroendocrine tumour metastatic
     Dosage: 400 MILLIGRAM/SQ. METER, CYCLE (D1, QD 22)
     Route: 065
     Dates: start: 201704
  3. STREPTOZOCIN [Suspect]
     Active Substance: STREPTOZOCIN
     Indication: Hepatic neuroendocrine tumour
     Dosage: 500 MILLIGRAM/SQ. METER, CYCLE (DAYS 1-5, QD 43)
     Route: 065
     Dates: start: 201409, end: 201704
  4. STREPTOZOCIN [Suspect]
     Active Substance: STREPTOZOCIN
     Indication: Pancreatic neuroendocrine tumour metastatic
     Dosage: 1000 MILLIGRAM/SQ. METER, CYCLE (D1, QD 22)
     Route: 065
     Dates: start: 201704

REACTIONS (2)
  - Chronic kidney disease [Unknown]
  - Glomerular filtration rate increased [Unknown]

NARRATIVE: CASE EVENT DATE: 20180601
